FAERS Safety Report 5733859-6 (Version None)
Quarter: 2008Q2

REPORT INFORMATION
  Report Type: 
  Country: None (occurrence: None)
  Receive Date: 20080509
  Receipt Date: 20080429
  Transmission Date: 20081010
  Serious: Yes (Hospitalization, Other)
  Sender: FDA-Public Use
  Company Number: US-ELI_LILLY_AND_COMPANY-US200805000615

PATIENT
  Age: 77 Year
  Sex: Male

DRUGS (3)
  1. HUMULIN R [Suspect]
     Dates: start: 19520101, end: 20040101
  2. HUMULIN R [Suspect]
     Dates: start: 20060101
  3. HUMULIN 70/30 [Suspect]
     Dates: start: 20040101, end: 20060101

REACTIONS (19)
  - ADVERSE DRUG REACTION [None]
  - BLINDNESS [None]
  - BLINDNESS UNILATERAL [None]
  - BLOOD GLUCOSE DECREASED [None]
  - BLOOD GLUCOSE INCREASED [None]
  - CATARACT [None]
  - COLONIC POLYP [None]
  - DEPRESSED MOOD [None]
  - DIPLOPIA [None]
  - EYE HAEMORRHAGE [None]
  - EYE INJURY [None]
  - GLAUCOMA [None]
  - HOSPITALISATION [None]
  - INTRAOCULAR PRESSURE INCREASED [None]
  - NEUROPATHY PERIPHERAL [None]
  - OCULAR HYPERAEMIA [None]
  - SUICIDAL IDEATION [None]
  - VISION BLURRED [None]
  - VISUAL ACUITY REDUCED [None]
